FAERS Safety Report 10105731 (Version 2)
Quarter: 2014Q2

REPORT INFORMATION
  Report Type: Other
  Country: US (occurrence: US)
  Receive Date: 20140424
  Receipt Date: 20140604
  Transmission Date: 20141212
  Serious: Yes (Hospitalization, Other)
  Sender: FDA-Public Use
  Company Number: US-GSKPPD-2014GSK001096

PATIENT
  Age: 52 Year
  Sex: Male

DRUGS (9)
  1. AVANDIA [Suspect]
     Indication: DIABETES MELLITUS
     Route: 048
     Dates: start: 20040312, end: 20080724
  2. AVANDAMET [Suspect]
     Indication: DIABETES MELLITUS
     Dosage: 4/500
     Route: 048
     Dates: start: 20040312, end: 20041210
  3. DILTIAZEM [Concomitant]
     Indication: DIABETES MELLITUS
     Route: 048
  4. ASPIRIN [Concomitant]
     Indication: DIABETES MELLITUS
     Route: 048
  5. DEMADEX [Concomitant]
     Indication: DIABETES MELLITUS
     Route: 048
  6. DIOVAN [Concomitant]
     Indication: DIABETES MELLITUS
     Route: 048
  7. IMDUR [Concomitant]
     Indication: DIABETES MELLITUS
     Route: 048
  8. METOPROLOL XL [Concomitant]
     Indication: DIABETES MELLITUS
     Route: 048
  9. METOPROLOL XL [Concomitant]
     Route: 048

REACTIONS (1)
  - Ischaemic cardiomyopathy [Recovered/Resolved]
